FAERS Safety Report 26034064 (Version 1)
Quarter: 2025Q4

REPORT INFORMATION
  Report Type: Spontaneous
  Country: US (occurrence: None)
  Receive Date: 20251111
  Receipt Date: 20251111
  Transmission Date: 20260118
  Serious: Yes (Hospitalization)
  Sender: FDA-CTU
  Company Number: None

PATIENT
  Age: 61 Year
  Sex: Male
  Weight: 72.57 kg

DRUGS (2)
  1. CALASPARGASE PEGOL-MKNL [Suspect]
     Active Substance: CALASPARGASE PEGOL-MKNL
     Indication: Pancreatic carcinoma
     Route: 042
     Dates: start: 20251013
  2. COBIMETINIB [Suspect]
     Active Substance: COBIMETINIB
     Dosage: FREQUENCY : DAILY;?
     Route: 048
     Dates: start: 20251013

REACTIONS (6)
  - Cerebrovascular accident [None]
  - Encephalopathy [None]
  - International normalised ratio increased [None]
  - Blood alkaline phosphatase increased [None]
  - Blood bilirubin increased [None]
  - Disease progression [None]

NARRATIVE: CASE EVENT DATE: 20251110
